FAERS Safety Report 4683687-8 (Version None)
Quarter: 2005Q2

REPORT INFORMATION
  Report Type: 
  Country: None (occurrence: None)
  Receive Date: 20050607
  Receipt Date: 20050601
  Transmission Date: 20051028
  Serious: Yes (Hospitalization)
  Sender: FDA-Public Use
  Company Number: 200515041GDDC

PATIENT
  Age: 62 Year
  Sex: Male

DRUGS (1)
  1. MINIRIN [Suspect]
     Indication: POLLAKIURIA
     Dates: start: 19980828, end: 19981203

REACTIONS (4)
  - CONFUSIONAL STATE [None]
  - HYPONATRAEMIA [None]
  - MUSCULAR WEAKNESS [None]
  - PSYCHIATRIC SYMPTOM [None]
